FAERS Safety Report 8887709 (Version 1)
Quarter: 2012Q4

REPORT INFORMATION
  Report Type: 
  Country: US (occurrence: US)
  Receive Date: 20121106
  Receipt Date: 20121106
  Transmission Date: 20130627
  Serious: Yes (Hospitalization, Other)
  Sender: FDA-Public Use
  Company Number: US-AMGEN-USASP2012069873

PATIENT
  Age: 61 Year
  Sex: Female
  Weight: 126.98 kg

DRUGS (13)
  1. ENBREL [Suspect]
     Indication: PSORIATIC ARTHROPATHY
     Dosage: UNK
     Dates: start: 2010, end: 2010
  2. ENBREL [Suspect]
     Indication: PSORIASIS
  3. HUMIRA [Concomitant]
     Indication: PSORIATIC ARTHROPATHY
     Dosage: 40 mg, qwk
     Dates: start: 2010
  4. VITAMIN D /00107901/ [Concomitant]
     Dosage: UNK
  5. CYMBALTA [Concomitant]
     Indication: PAIN
     Dosage: UNK
  6. CLONAZEPAM [Concomitant]
     Indication: PAIN
     Dosage: UNK
  7. NITROFURANTIN [Concomitant]
     Dosage: UNK
  8. BYSTOLIC [Concomitant]
     Indication: HYPERTENSION
     Dosage: UNK
  9. ACIPHEX [Concomitant]
     Dosage: UNK
  10. MONTELUKAST [Concomitant]
     Dosage: UNK
  11. DIOVAN [Concomitant]
     Indication: HYPERTENSION
     Dosage: UNK
  12. LANTUS [Concomitant]
     Indication: DIABETES MELLITUS
     Dosage: UNK
  13. HUMALOG [Concomitant]
     Indication: DIABETES MELLITUS
     Dosage: UNK

REACTIONS (16)
  - Pulmonary embolism [Unknown]
  - Blindness transient [Recovered/Resolved]
  - Hepatic necrosis [Unknown]
  - Brain injury [Unknown]
  - Dystonia [Unknown]
  - Restless legs syndrome [Unknown]
  - Hepatic enzyme increased [Unknown]
  - Bulbar palsy [Unknown]
  - VIIth nerve paralysis [Recovered/Resolved]
  - Multiple system atrophy [Unknown]
  - Blood pressure fluctuation [Recovered/Resolved]
  - Amnesia [Unknown]
  - Bladder sphincter atony [Unknown]
  - Anal sphincter atony [Unknown]
  - Intraocular pressure increased [Unknown]
  - Autoimmune hepatitis [Unknown]
